FAERS Safety Report 7659910-4 (Version None)
Quarter: 2011Q3

REPORT INFORMATION
  Report Type: 
  Country: None (occurrence: None)
  Receive Date: 20110805
  Receipt Date: 20110801
  Transmission Date: 20111222
  Serious: Yes (Other)
  Sender: FDA-Public Use
  Company Number: US-PFIZER INC-2011049502

PATIENT
  Sex: Male

DRUGS (9)
  1. LYRICA [Suspect]
     Indication: NEURALGIA
     Dosage: 75 MG, UNK
     Dates: start: 20100101
  2. LYRICA [Suspect]
     Dosage: 200 MG, UNK
  3. NEURONTIN [Suspect]
  4. LYRICA [Suspect]
     Indication: RADICULOPATHY
     Dosage: 150 MG, UNK
  5. LYRICA [Suspect]
     Dosage: 300 MG, 2X/DAY
     Route: 048
     Dates: start: 20101118
  6. LUNESTA [Concomitant]
     Dosage: 3 MG, UNK
     Dates: start: 20110226
  7. CELEBREX [Concomitant]
     Dosage: 200 MG, UNK
     Dates: start: 20110329
  8. OMEPRAZOLE [Concomitant]
     Dosage: 40 MG, UNK
     Dates: start: 20110301
  9. LYRICA [Suspect]
     Indication: BACK PAIN
     Dosage: 100 MG, UNK

REACTIONS (9)
  - CONSTIPATION [None]
  - DIZZINESS [None]
  - READING DISORDER [None]
  - ABNORMAL DREAMS [None]
  - HALLUCINATION [None]
  - ALTERED VISUAL DEPTH PERCEPTION [None]
  - DISTURBANCE IN ATTENTION [None]
  - FEELING ABNORMAL [None]
  - NAUSEA [None]
